FAERS Safety Report 7632137-8 (Version None)
Quarter: 2011Q3

REPORT INFORMATION
  Report Type: 
  Country: None (occurrence: None)
  Receive Date: 20110725
  Receipt Date: 20110725
  Transmission Date: 20111222
  Serious: Yes (Hospitalization)
  Sender: FDA-Public Use
  Company Number: None

PATIENT
  Sex: Male
  Weight: 3.135 kg

DRUGS (1)
  1. HURRICAINE [Suspect]

REACTIONS (1)
  - METHAEMOGLOBINAEMIA [None]
